FAERS Safety Report 4505070-8 (Version None)
Quarter: 2004Q4

REPORT INFORMATION
  Report Type: 
  Country: None (occurrence: None)
  Receive Date: 20041015
  Receipt Date: 20040818
  Transmission Date: 20050328
  Serious: Yes (Other)
  Sender: FDA-Public Use
  Company Number: 2004059018

PATIENT
  Age: 65 Year
  Sex: Male

DRUGS (5)
  1. NEURONTIN [Suspect]
     Indication: NEUROPATHY
     Dosage: ORAL
     Route: 048
     Dates: end: 20040801
  2. ANTINEOPLASTIC AGENTS [Concomitant]
  3. VICODIN [Concomitant]
  4. LISINOPRIL [Concomitant]
  5. ATORVASTATIN CALCIUM [Concomitant]

REACTIONS (1)
  - VISUAL FIELD DEFECT [None]
